FAERS Safety Report 10354681 (Version 1)
Quarter: 2014Q3

REPORT INFORMATION
  Report Type: Spontaneous
  Country: KR (occurrence: KR)
  Receive Date: 20140731
  Receipt Date: 20140731
  Transmission Date: 20150326
  Serious: Yes (Hospitalization)
  Sender: FDA-Public Use
  Company Number: PHHY2014KR093169

PATIENT
  Age: 5 Year
  Sex: Female

DRUGS (3)
  1. L-ASPARAGINASE [Suspect]
     Active Substance: ASPARAGINASE
     Indication: ACUTE LYMPHOCYTIC LEUKAEMIA
  2. METHOTREXATE [Suspect]
     Active Substance: METHOTREXATE
     Indication: ACUTE LYMPHOCYTIC LEUKAEMIA
     Route: 037
  3. CYTARABINE. [Suspect]
     Active Substance: CYTARABINE
     Indication: ACUTE LYMPHOCYTIC LEUKAEMIA

REACTIONS (14)
  - Gallbladder perforation [Recovered/Resolved]
  - Jejunal perforation [Recovered/Resolved]
  - Pyelocaliectasis [Recovered/Resolved]
  - Abdominal distension [Recovered/Resolved]
  - Soft tissue necrosis [Recovered/Resolved]
  - Abdominal rigidity [Recovered/Resolved]
  - Retroperitoneal abscess [Recovered/Resolved]
  - Aspergillus infection [Recovered/Resolved]
  - Renal necrosis [Recovered/Resolved]
  - Pyrexia [Recovered/Resolved]
  - Abdominal tenderness [Recovered/Resolved]
  - Renal infarct [Recovered/Resolved]
  - Abdominal pain [Recovered/Resolved]
  - Duodenal perforation [Recovered/Resolved]
